FAERS Safety Report 17853893 (Version 4)
Quarter: 2021Q2

REPORT INFORMATION
  Report Type: Report from Study
  Country: US (occurrence: US)
  Receive Date: 20200602
  Receipt Date: 20210504
  Transmission Date: 20210717
  Serious: Yes (Death, Life-Threatening, Hospitalization, Other)
  Sender: FDA-Public Use
  Company Number: US-BRISTOL-MYERS SQUIBB COMPANY-BMS-2020-042788

PATIENT
  Age: 78 Year
  Sex: Female
  Weight: 69.48 kg

DRUGS (1)
  1. IPILIMUMAB [Suspect]
     Active Substance: IPILIMUMAB
     Indication: NEOPLASM
     Dosage: 3 MILLIGRAM/KILOGRAM
     Route: 042
     Dates: start: 20200219, end: 20200330

REACTIONS (2)
  - Sepsis [Fatal]
  - Colitis [Fatal]

NARRATIVE: CASE EVENT DATE: 20200504
